FAERS Safety Report 7050977-3 (Version None)
Quarter: 2010Q4

REPORT INFORMATION
  Report Type: 
  Country: None (occurrence: None)
  Receive Date: 20101019
  Receipt Date: 20101005
  Transmission Date: 20110411
  Serious: Yes (Hospitalization)
  Sender: FDA-Public Use
  Company Number: JP-RANBAXY-2010RR-37950

PATIENT
  Age: 41 Year
  Sex: Male

DRUGS (15)
  1. NIFEDIPINE [Suspect]
     Dosage: 40 MG, UNK
  2. ISOSORBIDE [Suspect]
     Dosage: 60 MG, UNK
  3. NITROGLYCERINE TRANSDERMAL [Suspect]
     Dosage: 10 MG, UNK
  4. NITROGLYCERINE TRANSDERMAL [Suspect]
     Dosage: 20 MG, UNK
  5. NICORANDIL [Suspect]
     Dosage: 5 MG, UNK
  6. NICORANDIL [Suspect]
     Dosage: 15 MG, UNK
  7. NITROGLYCERIN [Suspect]
     Route: 048
  8. BENIDIPINE [Suspect]
     Dosage: 8 MG, UNK
  9. DILTIAZEM [Suspect]
     Dosage: 200 MG, UNK
  10. PRAVASTATIN [Suspect]
     Dosage: 5 MG, UNK
  11. FLUVASTATIN [Suspect]
     Dosage: 20 MG, UNK
  12. FLUVASTATIN [Suspect]
     Dosage: UNK
  13. ATENOLOL [Suspect]
     Dosage: 25 MG, UNK
  14. MAGNESIUM OXIDE [Suspect]
     Dosage: 750 MG, UNK
  15. ACETYLCHOLINE CHLORIDE [Suspect]

REACTIONS (3)
  - ARTERIOSPASM CORONARY [None]
  - DRUG INTERACTION [None]
  - DRUG TOLERANCE [None]
